FAERS Safety Report 26205697 (Version 1)
Quarter: 2025Q4

REPORT INFORMATION
  Report Type: Spontaneous
  Country: EU (occurrence: EU)
  Receive Date: 20251229
  Receipt Date: 20251229
  Transmission Date: 20260118
  Serious: Yes (Other)
  Sender: JOHNSON AND JOHNSON
  Company Number: EU-JNJFOC-20251229182

PATIENT
  Sex: Female

DRUGS (2)
  1. SPRAVATO [Suspect]
     Active Substance: ESKETAMINE
     Indication: Depression
     Route: 045
  2. SPRAVATO [Suspect]
     Active Substance: ESKETAMINE
     Route: 045

REACTIONS (4)
  - Suicidal behaviour [Unknown]
  - Influenza [Recovered/Resolved]
  - Fear [Recovered/Resolved]
  - Anxiety [Recovered/Resolved]
